FAERS Safety Report 9528614 (Version 1)
Quarter: 2013Q1

REPORT INFORMATION
  Report Type: Spontaneous
  Country: US (occurrence: None)
  Receive Date: 20130314
  Receipt Date: 20130314
  Transmission Date: 20140127
  Serious: No
  Sender: FDA-Public Use
  Company Number: 1211USA011855

PATIENT
  Age: 63 Year
  Sex: Female
  Weight: 87.1 kg

DRUGS (6)
  1. VICTRELIS (BOCEPREVIR) CAPSULE, 200MG [Suspect]
     Dosage: CAPSULE, 4 DF, TID EVERY 7-9 HOURS, ORAL
     Dates: start: 201210
  2. PEGASYS (PEGINTERFERON ALFA-2A) INJECTION [Suspect]
     Dosage: PROCLICK, SUBCUTANEOUS
  3. RIBAPAK (RIBAVIRIN) [Suspect]
     Dosage: PAK 1200 DOSE, ORAL
  4. ADVIL (IBUPROFEN) [Concomitant]
  5. IMODIUM ADVANCED (LOPERAMIDE HYDROCHLORIDE, SIMETHICONE) [Concomitant]
  6. HYDROCHLOROTHIAZIDE (+) TRIAMTERENE (HYDROCHLOROTHIAZIDE, TRIAMTERENE) [Concomitant]

REACTIONS (5)
  - Influenza like illness [None]
  - Muscular weakness [None]
  - Dysgeusia [None]
  - Fatigue [None]
  - Diarrhoea [None]
